FAERS Safety Report 9744546 (Version 4)
Quarter: 2014Q2

REPORT INFORMATION
  Report Type: Report from Study
  Country: TR (occurrence: TR)
  Receive Date: 20131210
  Receipt Date: 20140610
  Transmission Date: 20141212
  Serious: Yes (Hospitalization, Other)
  Sender: FDA-Public Use
  Company Number: TR-ABBVIE-13P-161-1177158-00

PATIENT
  Age: 45 Year
  Sex: Female
  Weight: 55 kg

DRUGS (4)
  1. HUMIRA [Suspect]
     Indication: CROHN^S DISEASE
     Route: 058
     Dates: start: 20120322, end: 201305
  2. HUMIRA [Suspect]
     Route: 058
     Dates: end: 20140203
  3. HUMIRA [Suspect]
     Dates: start: 20140303
  4. UNSPECIFIED MEDICATIONS [Concomitant]
     Indication: OSTEOPOROSIS

REACTIONS (5)
  - Intestinal stenosis [Not Recovered/Not Resolved]
  - Diarrhoea [Recovered/Resolved]
  - Arthralgia [Not Recovered/Not Resolved]
  - Osteoporosis [Recovering/Resolving]
  - Cough [Recovered/Resolved]
